FAERS Safety Report 6129956-6 (Version None)
Quarter: 2009Q1

REPORT INFORMATION
  Report Type: 
  Country: None (occurrence: None)
  Receive Date: 20090324
  Receipt Date: 20090324
  Transmission Date: 20090719
  Serious: Yes (Other)
  Sender: FDA-Public Use
  Company Number: None

PATIENT
  Age: 59 Year
  Sex: Male
  Weight: 99.7913 kg

DRUGS (2)
  1. ADVAIR DISKUS 250/50 [Suspect]
     Indication: ASTHMA EXERCISE INDUCED
     Dosage: 250 TWICE A DAY INHAL PRESSENTLY USING
     Route: 055
     Dates: start: 20061201, end: 20090331
  2. ADVAIR DISKUS 250/50 [Suspect]
     Indication: BRONCHITIS
     Dosage: 250 TWICE A DAY INHAL PRESSENTLY USING
     Route: 055
     Dates: start: 20061201, end: 20090331

REACTIONS (3)
  - APHONIA [None]
  - ASTHMA [None]
  - BRONCHITIS [None]
